FAERS Safety Report 7408287-8 (Version None)
Quarter: 2011Q2

REPORT INFORMATION
  Report Type: 
  Country: None (occurrence: None)
  Receive Date: 20110412
  Receipt Date: 20110401
  Transmission Date: 20111010
  Serious: Yes (Hospitalization)
  Sender: FDA-Public Use
  Company Number: FR-JNJFOC-20100502015

PATIENT
  Sex: Male

DRUGS (18)
  1. IRBESARTAN [Concomitant]
     Route: 065
  2. NEXIUM [Concomitant]
     Route: 065
  3. LYRICA [Concomitant]
     Route: 065
  4. SPASFON [Concomitant]
  5. EFFEXOR [Concomitant]
     Route: 065
  6. NOCTAMIDE [Concomitant]
     Route: 065
  7. DURAGESIC-100 [Suspect]
     Indication: MYALGIA
     Route: 062
  8. SPAGULAX [Concomitant]
     Route: 065
  9. MOVIPREP [Concomitant]
     Route: 065
  10. EDUCTYL [Concomitant]
     Route: 065
  11. ACUPAN [Concomitant]
     Route: 065
  12. CRESTOR [Concomitant]
     Route: 065
  13. ACETAMINOPHEN [Concomitant]
     Route: 065
  14. TERCIAN [Concomitant]
     Route: 065
  15. DEDROGYL [Concomitant]
     Route: 065
  16. RHINOFLUIMUCIL [Concomitant]
     Route: 065
  17. OMEXEL [Concomitant]
     Route: 065
  18. AMLODIPINE BESYLATE [Concomitant]
     Route: 065

REACTIONS (5)
  - COMA [None]
  - LUNG DISORDER [None]
  - MEDICATION ERROR [None]
  - RENAL FAILURE ACUTE [None]
  - RHABDOMYOLYSIS [None]
